FAERS Safety Report 4714648-8 (Version None)
Quarter: 2005Q3

REPORT INFORMATION
  Report Type: 
  Country: None (occurrence: None)
  Receive Date: 20050712
  Receipt Date: 20050628
  Transmission Date: 20060218
  Serious: Yes (Other)
  Sender: FDA-Public Use
  Company Number: 214584

PATIENT
  Age: 58 Year
  Sex: Male
  Weight: 77 kg

DRUGS (8)
  1. MABTHERA  (RITUXIMAB) CONC COR SOLUTION FOR INFUSION [Suspect]
     Indication: NON-HODGKIN'S LYMPHOMA
     Dosage: 600 MG, INTRAVENOUS
     Route: 042
     Dates: start: 20011116, end: 20011219
  2. ENDOXAN (CYCLOPHOSPHAMIDE) [Suspect]
     Indication: NON-HODGKIN'S LYMPHOMA
     Dosage: 3000 MG,
     Dates: start: 20011113, end: 20011114
  3. ETOPOSIDE [Suspect]
     Indication: NON-HODGKIN'S LYMPHOMA
     Dosage: 900 MG,
     Dates: start: 20011204, end: 20011207
  4. LOXONIN (LOXOPROFEN SODIUM) [Concomitant]
  5. POLARAMINE [Concomitant]
  6. FAMOTIDINE [Concomitant]
  7. ITRIZOLE (MICONAZOLE) [Concomitant]
  8. COTRIM [Concomitant]

REACTIONS (2)
  - PANCYTOPENIA [None]
  - PYREXIA [None]
